FAERS Safety Report 8312217-4 (Version None)
Quarter: 2012Q2

REPORT INFORMATION
  Report Type: 
  Country: None (occurrence: None)
  Receive Date: 20120425
  Receipt Date: 20120410
  Transmission Date: 20120825
  Serious: Yes (Other)
  Sender: FDA-Public Use
  Company Number: CHPA2012US009108

PATIENT
  Age: 66 Year
  Sex: Female

DRUGS (3)
  1. ANTIHYPERTENSIVE DRUGS [Concomitant]
  2. EXCEDRIN TENSION HEADACHE CAPLETS [Concomitant]
  3. EXCEDRIN EXTRA STRENGTH TABLETS [Suspect]
     Indication: HEADACHE
     Dosage: 1 DF, Q6H
     Route: 048

REACTIONS (2)
  - UNDERDOSE [None]
  - ULCER [None]
